FAERS Safety Report 9792201 (Version 2)
Quarter: 2014Q1

REPORT INFORMATION
  Report Type: Spontaneous
  Country: US (occurrence: US)
  Receive Date: 20140102
  Receipt Date: 20140102
  Transmission Date: 20141002
  Serious: No
  Sender: FDA-Public Use
  Company Number: US-GILEAD-2010-0030486

PATIENT
  Age: 36 Year
  Sex: Male
  Weight: 82.55 kg

DRUGS (5)
  1. HEPSERA [Suspect]
     Route: 048
  2. NASONEX [Concomitant]
  3. ALBUTEROL [Concomitant]
  4. ADVAIR [Concomitant]
  5. MVT [Concomitant]

REACTIONS (2)
  - Myalgia [Not Recovered/Not Resolved]
  - Arthralgia [Not Recovered/Not Resolved]
